FAERS Safety Report 25277714 (Version 1)
Quarter: 2025Q2

REPORT INFORMATION
  Report Type: Spontaneous
  Country: US (occurrence: US)
  Receive Date: 20250507
  Receipt Date: 20250507
  Transmission Date: 20250717
  Serious: Yes (Hospitalization, Other)
  Sender: BAYER HEALTHCARE LLC
  Company Number: US-BAYER-2025A059112

PATIENT
  Age: 28 Year
  Sex: Male
  Weight: 220 kg

DRUGS (2)
  1. ACETAMINOPHEN, GUAIFENESIN [Suspect]
     Active Substance: ACETAMINOPHEN\GUAIFENESIN
     Route: 048
     Dates: start: 2019
  2. HALDOL [Concomitant]
     Active Substance: HALOPERIDOL
     Indication: Schizophrenia
     Dosage: ONE INJECTION MONTHLY

REACTIONS (2)
  - Dependence [Not Recovered/Not Resolved]
  - Musculoskeletal stiffness [None]
